FAERS Safety Report 14427164 (Version 1)
Quarter: 2018Q1

REPORT INFORMATION
  Report Type: Spontaneous
  Country: US (occurrence: US)
  Receive Date: 20180123
  Receipt Date: 20180123
  Transmission Date: 20180509
  Serious: No
  Sender: FDA-Public Use
  Company Number: US-IMPAX LABORATORIES, INC-2017-IPXL-03488

PATIENT
  Age: 74 Year
  Sex: Male

DRUGS (5)
  1. RYTARY [Suspect]
     Active Substance: CARBIDOPA\LEVODOPA
     Dosage: 61.25/245 MG + 48.75/195 MG, 4 /DAY
     Route: 048
     Dates: start: 2017, end: 20180101
  2. SINEMET [Concomitant]
     Active Substance: CARBIDOPA\LEVODOPA
     Indication: PARKINSON^S DISEASE
     Dosage: UNK
     Route: 065
  3. RYTARY [Suspect]
     Active Substance: CARBIDOPA\LEVODOPA
     Indication: PARKINSON^S DISEASE
     Dosage: 61.25/245 MG, 2 CAPSULE, 3 /DAY
     Route: 048
     Dates: end: 2017
  4. RYTARY [Suspect]
     Active Substance: CARBIDOPA\LEVODOPA
     Dosage: 61.25/245 MG, 2 CAPSULE, 4 /DAY
     Route: 048
     Dates: start: 2017, end: 2017
  5. RYTARY [Suspect]
     Active Substance: CARBIDOPA\LEVODOPA
     Dosage: 61.25/245MG, 2 CAPSULES, 4 /DAY
     Route: 048
     Dates: start: 20180101

REACTIONS (6)
  - Joint swelling [Unknown]
  - Freezing phenomenon [Unknown]
  - Fall [Not Recovered/Not Resolved]
  - Muscle rupture [Recovering/Resolving]
  - Feeling abnormal [Unknown]
  - Dyskinesia [Unknown]

NARRATIVE: CASE EVENT DATE: 20171231
